FAERS Safety Report 7517577-X (Version None)
Quarter: 2011Q2

REPORT INFORMATION
  Report Type: 
  Country: None (occurrence: None)
  Receive Date: 20110601
  Receipt Date: 20110517
  Transmission Date: 20111010
  Serious: Yes (Death)
  Sender: FDA-Public Use
  Company Number: FR-GENENTECH-319078

PATIENT
  Sex: Male
  Weight: 85.2 kg

DRUGS (2)
  1. RITUXIMAB [Suspect]
     Indication: CHRONIC LYMPHOCYTIC LEUKAEMIA
     Dosage: 1000 MG, 1/MONTH
     Route: 042
     Dates: start: 20110308, end: 20110502
  2. CHLORAMBUCIL [Suspect]
     Indication: CHRONIC LYMPHOCYTIC LEUKAEMIA
     Dosage: 20 MG, QAM
     Route: 048
     Dates: start: 20110308, end: 20110508

REACTIONS (2)
  - RENAL FAILURE [None]
  - CARDIAC FAILURE [None]
